FAERS Safety Report 4982178-4 (Version None)
Quarter: 2006Q2

REPORT INFORMATION
  Report Type: 
  Country: None (occurrence: None)
  Receive Date: 20060419
  Receipt Date: 20060329
  Transmission Date: 20061013
  Serious: Yes (Hospitalization, Other)
  Sender: FDA-Public Use
  Company Number: US200603007106

PATIENT
  Age: 80 Year
  Sex: Female

DRUGS (5)
  1. FORTEO [Suspect]
     Indication: OSTEOPOROSIS
     Dates: start: 20051101
  2. FORTEO [Concomitant]
  3. CALCIUM (CALCIUM) [Concomitant]
  4. TYLENOL                /USA/(PARACETAMOL) [Concomitant]
  5. VICODIN [Concomitant]

REACTIONS (9)
  - ASTHENIA [None]
  - CLOSTRIDIAL INFECTION [None]
  - EATING DISORDER [None]
  - FALL [None]
  - GASTROINTESTINAL DISORDER [None]
  - PHARMACEUTICAL PRODUCT COMPLAINT [None]
  - SPINAL FRACTURE [None]
  - URINARY TRACT INFECTION [None]
  - WEIGHT DECREASED [None]
